FAERS Safety Report 24366011 (Version 1)
Quarter: 2024Q3

REPORT INFORMATION
  Report Type: Spontaneous
  Country: ES (occurrence: ES)
  Receive Date: 20240926
  Receipt Date: 20240926
  Transmission Date: 20241017
  Serious: Yes (Other)
  Sender: AUROBINDO
  Company Number: ES-AUROBINDO-AUR-APL-2024-046300

PATIENT
  Age: 44 Year
  Sex: Male

DRUGS (5)
  1. CIPROFLOXACIN [Suspect]
     Active Substance: CIPROFLOXACIN
     Indication: Wound treatment
     Dosage: EVERY 12 H FOR A WEEK
     Route: 065
  2. CIPROFLOXACIN [Suspect]
     Active Substance: CIPROFLOXACIN
     Indication: Pseudomonas infection
  3. CIPROFLOXACIN [Suspect]
     Active Substance: CIPROFLOXACIN
     Indication: Perichondritis
  4. CEFADROXIL [Suspect]
     Active Substance: CEFADROXIL
     Indication: Pseudomonas infection
     Dosage: UNK
     Route: 065
     Dates: start: 202209
  5. CEFADROXIL [Suspect]
     Active Substance: CEFADROXIL
     Indication: Perichondritis

REACTIONS (1)
  - Drug ineffective [Unknown]
